FAERS Safety Report 11905912 (Version 1)
Quarter: 2016Q1

REPORT INFORMATION
  Report Type: Spontaneous
  Country: US (occurrence: None)
  Receive Date: 20160108
  Receipt Date: 20160108
  Transmission Date: 20160526
  Serious: No
  Sender: FDA-Public Use
  Company Number: None

PATIENT
  Age: 60 Year
  Sex: Female
  Weight: 68.04 kg

DRUGS (6)
  1. CALCIUM [Concomitant]
     Active Substance: CALCIUM
  2. LISINOPRIL. [Concomitant]
     Active Substance: LISINOPRIL
  3. CENTRUM DAILY VITAMIN [Concomitant]
  4. ALIGN PROBIOTIC [Concomitant]
  5. NEUTROGENA SENSITIVE SKIN SUNSCREEN BROAD SPECTRUM SPF60 PLUS [Suspect]
     Active Substance: TITANIUM DIOXIDE\ZINC OXIDE
     Indication: PROPHYLAXIS
     Dosage: APPLY LIBERALLY ONCE DAILY APPLIED TO A SURFACE, USUALLY THE SKIN
     Route: 061
     Dates: start: 20160102, end: 20160102
  6. NEUTROGENA SENSITIVE SKIN SUNSCREEN BROAD SPECTRUM SPF60 PLUS [Suspect]
     Active Substance: TITANIUM DIOXIDE\ZINC OXIDE
     Indication: PHOTOSENSITIVITY REACTION
     Dosage: APPLY LIBERALLY ONCE DAILY APPLIED TO A SURFACE, USUALLY THE SKIN
     Route: 061
     Dates: start: 20160102, end: 20160102

REACTIONS (4)
  - Skin fissures [None]
  - Skin reaction [None]
  - Rash erythematous [None]
  - Rash pruritic [None]

NARRATIVE: CASE EVENT DATE: 20160102
